FAERS Safety Report 12485633 (Version 1)
Quarter: 2016Q2

REPORT INFORMATION
  Report Type: Spontaneous
  Country: PE (occurrence: PE)
  Receive Date: 20160621
  Receipt Date: 20160621
  Transmission Date: 20160815
  Serious: Yes (Other)
  Sender: FDA-Public Use
  Company Number: PE-BAYER-2016-115100

PATIENT

DRUGS (2)
  1. BONVIVA [Concomitant]
     Active Substance: IBANDRONATE SODIUM
     Dosage: UNK
  2. AVELOX [Suspect]
     Active Substance: MOXIFLOXACIN HYDROCHLORIDE
     Dosage: UNK
     Dates: start: 201508

REACTIONS (9)
  - Tinnitus [Unknown]
  - Feeling abnormal [Unknown]
  - Paralysis [Unknown]
  - Tinnitus [Unknown]
  - Adverse event [Unknown]
  - Nervous system disorder [Unknown]
  - Hypersensitivity [Unknown]
  - Insomnia [Unknown]
  - Hallucination [Unknown]

NARRATIVE: CASE EVENT DATE: 201508
